FAERS Safety Report 20882878 (Version 1)
Quarter: 2022Q2

REPORT INFORMATION
  Report Type: Spontaneous
  Country: US (occurrence: None)
  Receive Date: 20220526
  Receipt Date: 20220526
  Transmission Date: 20220720
  Serious: Yes (Other)
  Sender: FDA-Public Use
  Company Number: None

PATIENT
  Age: 25 Year
  Sex: Male
  Weight: 54 kg

DRUGS (5)
  1. NIRMATRELVIR\RITONAVIR [Suspect]
     Active Substance: NIRMATRELVIR\RITONAVIR
     Indication: COVID-19
     Dosage: TWICE A DAY ORAL?
     Route: 048
     Dates: start: 20220524, end: 20220525
  2. STELARA [Concomitant]
     Active Substance: USTEKINUMAB
     Dates: start: 20200102
  3. MESALAMINE [Concomitant]
     Active Substance: MESALAMINE
     Dates: start: 20210129
  4. VSL #3 probiotic [Concomitant]
     Dates: start: 20181031
  5. OMEPRAZOLE [Concomitant]
     Active Substance: OMEPRAZOLE
     Dates: start: 20200218

REACTIONS (1)
  - Diarrhoea haemorrhagic [None]

NARRATIVE: CASE EVENT DATE: 20220524
